FAERS Safety Report 9887465 (Version 1)
Quarter: 2014Q1

REPORT INFORMATION
  Report Type: Spontaneous
  Country: US (occurrence: None)
  Receive Date: 20140207
  Receipt Date: 20140207
  Transmission Date: 20141002
  Serious: Yes (Hospitalization)
  Sender: FDA-Public Use
  Company Number: None

PATIENT
  Age: 55 Year
  Sex: Female
  Weight: 73 kg

DRUGS (11)
  1. CETUXIMAB [Suspect]
     Route: 042
     Dates: start: 20140129, end: 20140119
  2. TAXOL [Suspect]
     Dates: start: 20140129
  3. CALCITOININ(SALMON) [Concomitant]
  4. MIACALCIN [Concomitant]
  5. NASAL SPRAY [Concomitant]
  6. FOLIC ACID ORAL TAB [Concomitant]
  7. HYDROZYZINE(ATARAX) [Concomitant]
  8. LIDOCAINE(LIDODERM) [Concomitant]
  9. MORPHINE [Concomitant]
  10. THIAMINE [Concomitant]
  11. TRAMADOL [Concomitant]

REACTIONS (2)
  - Chills [None]
  - Diarrhoea [None]
